FAERS Safety Report 6737533-9 (Version None)
Quarter: 2010Q2

REPORT INFORMATION
  Report Type: 
  Country: None (occurrence: None)
  Receive Date: 20100524
  Receipt Date: 20100524
  Transmission Date: 20101027
  Serious: Yes (Other)
  Sender: FDA-Public Use
  Company Number: None

PATIENT
  Age: 6 Year
  Sex: Female
  Weight: 22.6799 kg

DRUGS (1)
  1. CHILDREN'S TYLENOL  NA MCNEIL PPC [Suspect]
     Indication: PYREXIA
     Dosage: 2TSP 4 HOURS PO
     Route: 048
     Dates: start: 20100522, end: 20100522

REACTIONS (2)
  - DRUG HYPERSENSITIVITY [None]
  - PRODUCT QUALITY ISSUE [None]
